FAERS Safety Report 8394780-0 (Version None)
Quarter: 2012Q2

REPORT INFORMATION
  Report Type: 
  Country: None (occurrence: None)
  Receive Date: 20120530
  Receipt Date: 20120523
  Transmission Date: 20120825
  Serious: Yes (Death, Other)
  Sender: FDA-Public Use
  Company Number: JP-ASTELLAS-2012JP003408

PATIENT
  Age: 11 Year
  Sex: Male

DRUGS (5)
  1. CALCIUM ANTAGONIST [Concomitant]
     Dosage: UNK
     Route: 065
  2. ANTI-CONVULSIVE DRUG [Concomitant]
     Dosage: UNK
     Route: 065
  3. GANCICLOVIR [Concomitant]
     Dosage: UNK
     Route: 042
  4. PROGRAF [Suspect]
     Indication: IMMUNOSUPPRESSANT DRUG THERAPY
     Route: 048
  5. INTRACRANIAL PRESSURE DEPRESSANT [Concomitant]
     Dosage: UNK
     Route: 065

REACTIONS (3)
  - DRUG INEFFECTIVE [None]
  - GRAFT VERSUS HOST DISEASE [None]
  - ENCEPHALITIS HERPES [None]
